FAERS Safety Report 14735401 (Version 1)
Quarter: 2018Q2

REPORT INFORMATION
  Report Type: Spontaneous
  Country: JP (occurrence: JP)
  Receive Date: 20180409
  Receipt Date: 20180409
  Transmission Date: 20180711
  Serious: Yes (Death, Other)
  Sender: FDA-Public Use
  Company Number: JP-009507513-1804JPN000587J

PATIENT
  Age: 74 Year

DRUGS (5)
  1. RINDERON V [Concomitant]
     Active Substance: BETAMETHASONE VALERATE
     Indication: OEDEMA
     Dosage: 4 MG, UNK
     Route: 065
     Dates: start: 20171213
  2. RINDERON V [Concomitant]
     Active Substance: BETAMETHASONE VALERATE
     Dosage: 2 MG, UNK
     Route: 065
     Dates: start: 20180112
  3. KEYTRUDA [Suspect]
     Active Substance: PEMBROLIZUMAB
     Indication: NON-SMALL CELL LUNG CANCER STAGE IV
     Dosage: 200 MG, UNK
     Route: 041
     Dates: start: 20180117, end: 20180117
  4. RINDERON V [Concomitant]
     Active Substance: BETAMETHASONE VALERATE
     Dosage: 3 MG, UNK
     Route: 065
     Dates: start: 20180105
  5. RINDERON V [Concomitant]
     Active Substance: BETAMETHASONE VALERATE
     Dosage: 1 MG, UNK
     Route: 065
     Dates: start: 20180117

REACTIONS (5)
  - Metastases to central nervous system [Fatal]
  - Adrenal insufficiency [Fatal]
  - Diabetes mellitus [Fatal]
  - Malignant neoplasm progression [Fatal]
  - Pneumonia aspiration [Fatal]

NARRATIVE: CASE EVENT DATE: 20180122
